FAERS Safety Report 20211506 (Version 1)
Quarter: 2021Q4

REPORT INFORMATION
  Report Type: Spontaneous
  Country: US (occurrence: None)
  Receive Date: 20211220
  Receipt Date: 20211220
  Transmission Date: 20220303
  Serious: No
  Sender: FDA-Public Use
  Company Number: None

PATIENT
  Sex: Male
  Weight: 79.38 kg

DRUGS (16)
  1. ERLEADA [Suspect]
     Active Substance: APALUTAMIDE
     Indication: Prostate cancer
     Dosage: FREQUENCY : DAILY;?
     Route: 048
  2. TRELSTAR [Concomitant]
     Active Substance: TRIPTORELIN PAMOATE
  3. LUTEIN [Concomitant]
     Active Substance: LUTEIN
  4. LYCOPENE [Concomitant]
     Active Substance: LYCOPENE
  5. MAGNESIUM [Concomitant]
     Active Substance: MAGNESIUM
  6. VITAMIN D3 [Concomitant]
     Active Substance: CHOLECALCIFEROL
  7. PROTONIX [Concomitant]
     Active Substance: PANTOPRAZOLE SODIUM
  8. RAMIPRIL [Concomitant]
     Active Substance: RAMIPRIL
  9. FOLIC ACID [Concomitant]
     Active Substance: FOLIC ACID
  10. CARVEDILOL [Concomitant]
     Active Substance: CARVEDILOL
  11. DIGOXIN [Concomitant]
     Active Substance: DIGOXIN
  12. FLUVASTATIN [Concomitant]
     Active Substance: FLUVASTATIN SODIUM
  13. PLAVIX [Concomitant]
     Active Substance: CLOPIDOGREL BISULFATE
  14. AMLODIPINE [Concomitant]
     Active Substance: AMLODIPINE BESYLATE
  15. WARFARIN [Concomitant]
     Active Substance: WARFARIN
  16. TRIAMCINOLONE [Concomitant]
     Active Substance: TRIAMCINOLONE

REACTIONS (1)
  - Disease progression [None]
